FAERS Safety Report 8378655-9 (Version None)
Quarter: 2012Q2

REPORT INFORMATION
  Report Type: 
  Country: None (occurrence: None)
  Receive Date: 20120522
  Receipt Date: 20110411
  Transmission Date: 20120825
  Serious: No
  Sender: FDA-Public Use
  Company Number: US-ASTRAZENECA-2011SE20654

PATIENT
  Age: 64 Year
  Sex: Female
  Weight: 88.9 kg

DRUGS (8)
  1. LEVOTHYROXINE SODIUM [Concomitant]
  2. AGGRENOX [Concomitant]
  3. LASIX [Concomitant]
  4. PRILOSEC [Suspect]
     Route: 048
     Dates: start: 19910101
  5. REGLAN [Concomitant]
  6. TOPROL-XL [Concomitant]
  7. POTASSIUM CHLORIDE [Concomitant]
  8. ALDACTONE [Concomitant]

REACTIONS (3)
  - BARRETT'S OESOPHAGUS [None]
  - ABDOMINAL PAIN [None]
  - INAPPROPRIATE SCHEDULE OF DRUG ADMINISTRATION [None]
